APPROVED DRUG PRODUCT: IMITREX STATDOSE
Active Ingredient: SUMATRIPTAN SUCCINATE
Strength: EQ 4MG BASE/0.5ML (EQ 8MG BASE/ML)
Dosage Form/Route: INJECTABLE;SUBCUTANEOUS
Application: N020080 | Product #002 | TE Code: AB
Applicant: GLAXOSMITHKLINE
Approved: Feb 1, 2006 | RLD: Yes | RS: Yes | Type: RX